FAERS Safety Report 15534516 (Version 1)
Quarter: 2018Q4

REPORT INFORMATION
  Report Type: Spontaneous
  Country: US (occurrence: US)
  Receive Date: 20181022
  Receipt Date: 20181022
  Transmission Date: 20190205
  Serious: No
  Sender: FDA-Public Use
  Company Number: US-DRREDDYS-USA/USA/18/0100475

PATIENT
  Age: 71 Year
  Sex: Female
  Weight: 56.8 kg

DRUGS (1)
  1. RANITIDINE. [Suspect]
     Active Substance: RANITIDINE
     Indication: PRODUCT USED FOR UNKNOWN INDICATION
     Dates: start: 201801, end: 201802

REACTIONS (4)
  - Nausea [Recovering/Resolving]
  - Ageusia [Recovering/Resolving]
  - Weight decreased [Recovering/Resolving]
  - Product taste abnormal [Recovering/Resolving]

NARRATIVE: CASE EVENT DATE: 201801
